FAERS Safety Report 20469229 (Version 1)
Quarter: 2022Q1

REPORT INFORMATION
  Report Type: Report from Study
  Country: CA (occurrence: CA)
  Receive Date: 20220214
  Receipt Date: 20220214
  Transmission Date: 20220424
  Serious: Yes (Other)
  Sender: FDA-Public Use
  Company Number: CA-JNJFOC-20220220348

PATIENT
  Age: 65 Year
  Sex: Female
  Weight: 62.8 kg

DRUGS (1)
  1. REMICADE [Suspect]
     Active Substance: INFLIXIMAB
     Indication: Serpiginous choroiditis
     Dosage: STRENGTH = 100 MG
     Route: 042

REACTIONS (1)
  - Skin cancer [Unknown]
